FAERS Safety Report 8454892-X (Version None)
Quarter: 2012Q2

REPORT INFORMATION
  Report Type: 
  Country: None (occurrence: None)
  Receive Date: 20120614
  Receipt Date: 20120529
  Transmission Date: 20120825
  Serious: Yes (Hospitalization)
  Sender: FDA-Public Use
  Company Number: DSA_57604_2012

PATIENT
  Age: 87 Year
  Sex: Male

DRUGS (13)
  1. OMEPRAZOLE [Concomitant]
  2. BENEXOL [Concomitant]
  3. DEURSIL [Concomitant]
  4. FOLINA [Concomitant]
  5. BISOPROLOL FUMARATE [Suspect]
     Indication: CARDIAC FAILURE
     Dosage: (2.5 MG QD ORAL), (DF)
     Route: 048
     Dates: start: 20101201, end: 20110113
  6. BISOPROLOL FUMARATE [Suspect]
     Indication: CARDIAC FAILURE
     Dosage: (2.5 MG QD ORAL), (DF)
     Route: 048
     Dates: start: 20110101
  7. COUMADIN [Concomitant]
  8. CORDARONE [Suspect]
     Indication: ATRIAL FIBRILLATION
     Dosage: (200 MG QD ORAL),
     Route: 048
     Dates: start: 20080113
  9. FERROUS SULFATE TAB [Concomitant]
  10. ENALAPRIL MALEATE [Suspect]
     Indication: HYPERTENSION
     Dosage: (5 MG QD ORAL)
     Route: 048
     Dates: start: 20101201, end: 20110113
  11. LASIX [Suspect]
     Indication: PRODUCT USED FOR UNKNOWN INDICATION
     Dosage: 125 MG QD ORAL), (DF)
     Route: 048
     Dates: start: 20101201, end: 20110113
  12. LASIX [Suspect]
     Indication: PRODUCT USED FOR UNKNOWN INDICATION
     Dosage: 125 MG QD ORAL), (DF)
     Route: 048
     Dates: start: 20110101
  13. RANEXA [Concomitant]

REACTIONS (5)
  - HYPOTENSION [None]
  - BLOOD CREATININE INCREASED [None]
  - TRI-IODOTHYRONINE FREE DECREASED [None]
  - BLOOD THYROID STIMULATING HORMONE INCREASED [None]
  - THYROXINE FREE DECREASED [None]
